FAERS Safety Report 14235348 (Version 1)
Quarter: 2017Q4

REPORT INFORMATION
  Report Type: Report from Study
  Country: None (occurrence: CO)
  Receive Date: 20171129
  Receipt Date: 20171129
  Transmission Date: 20180321
  Serious: Yes (Death)
  Sender: FDA-Public Use
  Company Number: CO-ABBVIE-17S-036-2176994-00

PATIENT
  Age: 45 Year
  Sex: Male
  Weight: 70 kg

DRUGS (1)
  1. ZEMPLAR [Suspect]
     Active Substance: PARICALCITOL
     Indication: HYPERPARATHYROIDISM SECONDARY
     Route: 048
     Dates: start: 20130617, end: 20171017

REACTIONS (3)
  - Loss of consciousness [Fatal]
  - Electrolyte imbalance [Fatal]
  - Seizure [Fatal]

NARRATIVE: CASE EVENT DATE: 20171101
